FAERS Safety Report 7357101-8 (Version None)
Quarter: 2011Q1

REPORT INFORMATION
  Report Type: 
  Country: None (occurrence: None)
  Receive Date: 20110317
  Receipt Date: 20100927
  Transmission Date: 20110831
  Serious: Yes (Hospitalization, Other)
  Sender: FDA-Public Use
  Company Number: US-BAYER-201019710NA

PATIENT
  Sex: Female
  Weight: 83.9 kg

DRUGS (7)
  1. YASMIN [Suspect]
     Route: 048
  2. OCELLA [Suspect]
     Route: 048
  3. YAZ [Suspect]
     Indication: PREMENSTRUAL SYNDROME
     Dosage: UNK UNK, UNK
     Route: 048
     Dates: start: 20060530, end: 20080101
  4. ORAL CONTRACEPTIVE NOS [Concomitant]
     Indication: CONTRACEPTION
     Dosage: SAMPLES RECEIVED
     Route: 065
     Dates: start: 20080101
  5. YAZ [Suspect]
  6. MACROBID [Concomitant]
     Indication: CYSTITIS
     Dosage: 100 MG, BID
     Route: 065
     Dates: start: 20080101
  7. YAZ [Suspect]
     Indication: CONTRACEPTION

REACTIONS (14)
  - ABDOMINAL PAIN [None]
  - NAUSEA [None]
  - BILE DUCT STONE [None]
  - GASTROINTESTINAL PAIN [None]
  - DIARRHOEA [None]
  - DEPRESSION [None]
  - CHOLECYSTITIS ACUTE [None]
  - VOMITING [None]
  - MICROLITHIASIS [None]
  - IRRITABLE BOWEL SYNDROME [None]
  - MAJOR DEPRESSION [None]
  - CHOLELITHIASIS [None]
  - JAUNDICE CHOLESTATIC [None]
  - CHOLECYSTITIS CHRONIC [None]
